FAERS Safety Report 4445720-8 (Version None)
Quarter: 2004Q3

REPORT INFORMATION
  Report Type: 
  Country: None (occurrence: None)
  Receive Date: 20040908
  Receipt Date: 20040908
  Transmission Date: 20050211
  Serious: Yes (Disabling)
  Sender: FDA-Public Use
  Company Number: None

PATIENT
  Age: 53 Year
  Sex: Female
  Weight: 58.9676 kg

DRUGS (17)
  1. PEGASYS [Suspect]
     Indication: HEPATITIS C
     Dosage: 180 MCG IM ONCE WEEKLY
     Route: 030
     Dates: start: 20030310, end: 20030610
  2. COPEGUS [Suspect]
     Dosage: 600 MG AM AND 400 MG PM
     Dates: start: 20030310, end: 20030610
  3. ATENOLOL [Concomitant]
  4. LANOXIN [Concomitant]
  5. VALIUM [Concomitant]
  6. SYNERGY POWDER [Concomitant]
  7. OMEGA 3 [Concomitant]
  8. MILK THISTLE [Concomitant]
  9. OLIVE LEAF [Concomitant]
  10. SYNERGY MULTIVITAMIN [Concomitant]
  11. PHOSPHATIDYL CHOLINE [Concomitant]
  12. PHOSPHATIDYL SERINE [Concomitant]
  13. GPC (GLYCEROPHOSPHOCHOLINE) [Concomitant]
  14. SYNERGY CARNITINE [Concomitant]
  15. LIPOIC ACID SUPREME [Concomitant]
  16. COENZYME Q10 [Concomitant]
  17. TRANSFER FACTOR PLUS [Concomitant]

REACTIONS (10)
  - CORNEAL REFLEX DECREASED [None]
  - DIPLOPIA [None]
  - EYE DISORDER [None]
  - EYE PAIN [None]
  - HALO VISION [None]
  - HYPERSENSITIVITY [None]
  - KERATITIS [None]
  - MIGRAINE [None]
  - PHOTOPHOBIA [None]
  - VISUAL DISTURBANCE [None]
